FAERS Safety Report 4504406-1 (Version None)
Quarter: 2004Q4

REPORT INFORMATION
  Report Type: 
  Country: None (occurrence: None)
  Receive Date: 20041117
  Receipt Date: 20041117
  Transmission Date: 20050328
  Serious: Yes (Hospitalization)
  Sender: FDA-Public Use
  Company Number: None

PATIENT
  Age: 70 Year
  Sex: Male

DRUGS (2)
  1. VINCRISTINE [Suspect]
     Indication: CARCINOMA
     Dosage: 2 MG X 1
  2. CYCLOPHOSPHAMIDE [Suspect]
     Indication: CARCINOMA
     Dosage: 1650 MG X 1

REACTIONS (1)
  - FEBRILE NEUTROPENIA [None]
